FAERS Safety Report 10235902 (Version 1)
Quarter: 2014Q1

REPORT INFORMATION
  Report Type: Spontaneous
  Country: US (occurrence: None)
  Receive Date: 20140306
  Receipt Date: 20140306
  Transmission Date: 20141002
  Serious: Yes (Hospitalization, Disabling)
  Sender: FDA-Public Use
  Company Number: 163-21880-13103699

PATIENT
  Age: 66 Year
  Sex: Male

DRUGS (4)
  1. REVLIMID [Suspect]
     Indication: PLASMA CELL MYELOMA
     Dosage: 25 MG, 14 IN 28 D, PO
     Route: 048
     Dates: start: 20130805
  2. VELCADE (BORTEZOMIB) [Concomitant]
  3. DYAZIDE (DYAZIDE) [Concomitant]
  4. PREDNISONE (PREDNISONE) [Concomitant]

REACTIONS (1)
  - Neuropathy peripheral [None]
